FAERS Safety Report 25107666 (Version 4)
Quarter: 2025Q2

REPORT INFORMATION
  Report Type: Report from Study
  Country: NL (occurrence: NL)
  Receive Date: 20250322
  Receipt Date: 20250409
  Transmission Date: 20250717
  Serious: Yes (Hospitalization, Other)
  Sender: ABBVIE
  Company Number: NL-ABBVIE-6187082

PATIENT
  Age: 49 Year
  Sex: Female
  Weight: 59.3 kg

DRUGS (3)
  1. UPADACITINIB [Suspect]
     Active Substance: UPADACITINIB
     Indication: Crohn^s disease
     Route: 048
     Dates: start: 20250304, end: 20250317
  2. VITAMIN D3 [Concomitant]
     Active Substance: CHOLECALCIFEROL
     Indication: Prophylaxis
     Route: 048
     Dates: start: 202401
  3. VITAMIN B12 [Concomitant]
     Active Substance: CYANOCOBALAMIN
     Indication: Prophylaxis
     Route: 048
     Dates: start: 202401

REACTIONS (6)
  - Ileal perforation [Recovered/Resolved]
  - Crohn^s disease [Recovered/Resolved]
  - Procedural pain [Not Recovered/Not Resolved]
  - Procedural nausea [Not Recovered/Not Resolved]
  - Blood potassium decreased [Recovered/Resolved]
  - Hypophosphataemia [Recovered/Resolved]

NARRATIVE: CASE EVENT DATE: 20250317
